FAERS Safety Report 5575886-8 (Version None)
Quarter: 2007Q4

REPORT INFORMATION
  Report Type: 
  Country: None (occurrence: None)
  Receive Date: 20071130
  Receipt Date: 20070730
  Transmission Date: 20080405
  Serious: No
  Sender: FDA-Public Use
  Company Number: US200707007160

PATIENT
  Age: 64 Year
  Sex: Female

DRUGS (7)
  1. BYETTA [Suspect]
     Indication: WEIGHT CONTROL
     Dosage: 5 UG, SUBCUTANEOUS ; 10 UG, SUBCUTANEOUS
     Route: 058
     Dates: start: 20070401, end: 20070701
  2. BYETTA [Suspect]
     Indication: WEIGHT CONTROL
     Dosage: 5 UG, SUBCUTANEOUS ; 10 UG, SUBCUTANEOUS
     Route: 058
     Dates: start: 20070701
  3. INSULIN (INSULIN) [Concomitant]
  4. ALLOPURINOL [Concomitant]
  5. COLCHICUM JTL LIQ [Concomitant]
  6. CARDIZEM [Concomitant]
  7. MICARDIS [Concomitant]

REACTIONS (4)
  - BLOOD CREATININE INCREASED [None]
  - BLOOD URIC ACID INCREASED [None]
  - DECREASED APPETITE [None]
  - DIARRHOEA [None]
